FAERS Safety Report 7589875-5 (Version None)
Quarter: 2011Q3

REPORT INFORMATION
  Report Type: 
  Country: None (occurrence: None)
  Receive Date: 20110705
  Receipt Date: 20110629
  Transmission Date: 20111222
  Serious: Yes (Hospitalization, Other)
  Sender: FDA-Public Use
  Company Number: US-MERCK-1106USA02274

PATIENT
  Age: 59 Year
  Sex: Female
  Weight: 101 kg

DRUGS (19)
  1. VITAMINS (UNSPECIFIED) [Concomitant]
     Route: 065
  2. PRISTIQ [Concomitant]
     Route: 065
     Dates: end: 20110613
  3. MELATONIN [Concomitant]
     Route: 065
  4. SYMBICORT [Concomitant]
     Route: 065
  5. SOLAL BI EST [Concomitant]
     Route: 065
  6. PROBIOTICS (UNSPECIFIED) [Concomitant]
     Route: 065
  7. LIOTRIX [Concomitant]
     Route: 065
  8. PATADAY [Concomitant]
     Indication: EYE ALLERGY
     Route: 065
  9. ACTOS [Concomitant]
     Indication: DETOXIFICATION
     Route: 065
  10. VITAMIN D (UNSPECIFIED) [Concomitant]
     Route: 065
  11. OMEGA-3 MARINE TRIGLYCERIDES [Concomitant]
     Route: 065
  12. SINGULAIR [Concomitant]
     Route: 048
  13. POTASSIUM CITRATE [Concomitant]
     Route: 065
  14. PRASTERONE [Concomitant]
     Route: 065
  15. PROGESTERONE [Concomitant]
     Route: 065
  16. STROMECTOL [Suspect]
     Indication: STRONGYLOIDIASIS
     Dosage: 7 TABLETS
     Route: 048
     Dates: start: 20110531, end: 20110601
  17. WELCHOL [Concomitant]
     Indication: DETOXIFICATION
     Route: 065
  18. DOXYCYCLINE [Concomitant]
     Route: 065
     Dates: end: 20110613
  19. ASCORBIC ACID [Concomitant]
     Route: 065

REACTIONS (20)
  - TACHYCARDIA [None]
  - HYPERTENSION [None]
  - DIZZINESS [None]
  - CONSTIPATION [None]
  - FATIGUE [None]
  - BLOOD POTASSIUM DECREASED [None]
  - VERTIGO [None]
  - TREMOR [None]
  - BACK PAIN [None]
  - ASTHMA [None]
  - CHEST PAIN [None]
  - PAIN IN EXTREMITY [None]
  - LOSS OF CONSCIOUSNESS [None]
  - CHILLS [None]
  - SOMNOLENCE [None]
  - PAIN IN JAW [None]
  - ORTHOSTATIC HYPOTENSION [None]
  - INAPPROPRIATE SCHEDULE OF DRUG ADMINISTRATION [None]
  - NYSTAGMUS [None]
  - PARAESTHESIA [None]
